FAERS Safety Report 25386941 (Version 2)
Quarter: 2025Q2

REPORT INFORMATION
  Report Type: Spontaneous
  Country: US (occurrence: US)
  Receive Date: 20250602
  Receipt Date: 20250623
  Transmission Date: 20250716
  Serious: No
  Sender: EISAI
  Company Number: US-Eisai-EC-2025-189296

PATIENT
  Age: 55 Year
  Sex: Female
  Weight: 89.9 kg

DRUGS (1)
  1. LEQEMBI [Suspect]
     Active Substance: LECANEMAB-IRMB
     Indication: Dementia Alzheimer^s type
     Dates: start: 20250327

REACTIONS (1)
  - Cerebral microhaemorrhage [Not Recovered/Not Resolved]

NARRATIVE: CASE EVENT DATE: 20250512
